FAERS Safety Report 26006373 (Version 2)
Quarter: 2025Q4

REPORT INFORMATION
  Report Type: Report from Study
  Country: US (occurrence: US)
  Receive Date: 20251106
  Receipt Date: 20251215
  Transmission Date: 20260118
  Serious: Yes (Hospitalization)
  Sender: TAKEDA
  Company Number: US-TAKEDA-2025TUS093714

PATIENT
  Sex: Female

DRUGS (4)
  1. TEDUGLUTIDE [Suspect]
     Active Substance: TEDUGLUTIDE
     Indication: Short-bowel syndrome
     Dosage: 0.47 MILLILITER, QD
     Dates: start: 202510
  2. TEDUGLUTIDE [Suspect]
     Active Substance: TEDUGLUTIDE
  3. TEDUGLUTIDE [Suspect]
     Active Substance: TEDUGLUTIDE
  4. TEDUGLUTIDE [Suspect]
     Active Substance: TEDUGLUTIDE

REACTIONS (6)
  - Fall [Unknown]
  - Device dislocation [Unknown]
  - Taste disorder [Unknown]
  - Feeding disorder [Unknown]
  - Nausea [Recovered/Resolved]
  - Abdominal pain [Recovered/Resolved]
